FAERS Safety Report 7482308-9 (Version None)
Quarter: 2011Q2

REPORT INFORMATION
  Report Type: 
  Country: None (occurrence: None)
  Receive Date: 20110516
  Receipt Date: 20100630
  Transmission Date: 20111010
  Serious: No
  Sender: FDA-Public Use
  Company Number: US-PFIZER INC-2010082383

PATIENT
  Sex: Male

DRUGS (2)
  1. CELEBREX [Suspect]
     Dosage: UNKNOWN
  2. WARFARIN SODIUM [Suspect]

REACTIONS (1)
  - BLOOD URINE PRESENT [None]
